FAERS Safety Report 25140160 (Version 1)
Quarter: 2025Q1

REPORT INFORMATION
  Report Type: Spontaneous
  Country: JP (occurrence: JP)
  Receive Date: 20250331
  Receipt Date: 20250331
  Transmission Date: 20250408
  Serious: Yes (Other)
  Sender: ALEXION PHARMACEUTICALS
  Company Number: JP-ASTRAZENECA-250028350_012620_P_1

PATIENT

DRUGS (3)
  1. TRUQAP [Suspect]
     Active Substance: CAPIVASERTIB
     Indication: Breast cancer
     Dosage: DRUG ADMINISTRATION FOR 4 CONSECUTIVE DAYS FOLLOWED BY DRUG SUSPENSION FOR 3 DAYS
  2. FULVESTRANT [Suspect]
     Active Substance: FULVESTRANT
     Indication: Breast cancer
  3. FULVESTRANT [Suspect]
     Active Substance: FULVESTRANT

REACTIONS (2)
  - Cystitis haemorrhagic [Unknown]
  - Nausea [Unknown]
